FAERS Safety Report 6814276-4 (Version None)
Quarter: 2010Q3

REPORT INFORMATION
  Report Type: 
  Country: None (occurrence: None)
  Receive Date: 20100702
  Receipt Date: 20100624
  Transmission Date: 20110219
  Serious: Yes (Other)
  Sender: FDA-Public Use
  Company Number: JP-JNJFOC-20100607742

PATIENT

DRUGS (1)
  1. ITRIZOLE [Suspect]
     Indication: ORAL CANDIDIASIS
     Route: 048

REACTIONS (1)
  - INTERSTITIAL LUNG DISEASE [None]
